FAERS Safety Report 8368378-4 (Version None)
Quarter: 2012Q2

REPORT INFORMATION
  Report Type: 
  Country: None (occurrence: None)
  Receive Date: 20120517
  Receipt Date: 20120508
  Transmission Date: 20120825
  Serious: Yes (Hospitalization)
  Sender: FDA-Public Use
  Company Number: NL-ELI_LILLY_AND_COMPANY-NL201205003518

PATIENT
  Sex: Female
  Weight: 59 kg

DRUGS (7)
  1. OMEPRAZOLE [Concomitant]
     Dosage: 20 MG, UNKNOWN
     Route: 065
  2. VITAMIN D [Concomitant]
     Dosage: UNK, UNKNOWN
     Route: 065
  3. FORTEO [Suspect]
     Indication: OSTEOPOROSIS
     Dosage: 20 UG, QD
     Route: 065
     Dates: start: 20110415, end: 20120405
  4. EUTHYROX [Concomitant]
     Dosage: 25 UG, UNKNOWN
     Route: 065
     Dates: start: 19950101
  5. VITAMIN K TAB [Concomitant]
     Dosage: UNK, UNKNOWN
     Route: 065
  6. ACETYLSALICYLZUUR [Concomitant]
     Dosage: 80 MG, UNKNOWN
     Route: 065
  7. BIOCALCIUM D3 [Concomitant]
     Dosage: UNK, UNKNOWN
     Route: 065

REACTIONS (4)
  - BONE PAIN [None]
  - DEPRESSED MOOD [None]
  - HEADACHE [None]
  - BLOOD PRESSURE INCREASED [None]
